FAERS Safety Report 8817675 (Version 1)
Quarter: 2012Q4

REPORT INFORMATION
  Report Type: 
  Country: CA (occurrence: CA)
  Receive Date: 20121001
  Receipt Date: 20121001
  Transmission Date: 20130627
  Serious: Yes (Death)
  Sender: FDA-Public Use
  Company Number: PHHY2012CA084995

PATIENT
  Sex: Male

DRUGS (3)
  1. ACLASTA [Suspect]
     Indication: OSTEOPOROSIS
     Route: 042
     Dates: start: 20091008
  2. ACLASTA [Suspect]
     Route: 042
     Dates: start: 20101020
  3. ACLASTA [Suspect]
     Route: 042
     Dates: start: 20111213

REACTIONS (1)
  - Death [Fatal]
